FAERS Safety Report 20480681 (Version 1)
Quarter: 2022Q1

REPORT INFORMATION
  Report Type: Spontaneous
  Country: US (occurrence: None)
  Receive Date: 20220216
  Receipt Date: 20220216
  Transmission Date: 20220424
  Serious: Yes (Death)
  Sender: FDA-Public Use
  Company Number: None

PATIENT
  Age: 73 Year
  Sex: Male
  Weight: 78 kg

DRUGS (3)
  1. BARICITINIB [Suspect]
     Active Substance: BARICITINIB
     Indication: COVID-19
     Dosage: FREQUENCY : DAILY;?
     Route: 048
     Dates: start: 20220209, end: 20220211
  2. Dexamethasone 6 mg PO Daily [Concomitant]
     Dates: start: 20220202, end: 20220211
  3. Enoxaparin 80 mg SQ Q12H [Concomitant]
     Dates: start: 20220203, end: 20220211

REACTIONS (5)
  - Abdominal pain [None]
  - Renal infarct [None]
  - Renal artery thrombosis [None]
  - Mesenteric artery thrombosis [None]
  - Peripheral artery thrombosis [None]

NARRATIVE: CASE EVENT DATE: 20220215
